FAERS Safety Report 25289987 (Version 1)
Quarter: 2025Q2

REPORT INFORMATION
  Report Type: Spontaneous
  Country: CA (occurrence: CA)
  Receive Date: 20250509
  Receipt Date: 20250509
  Transmission Date: 20250717
  Serious: Yes (Other)
  Sender: ANI
  Company Number: CA-ANIPHARMA-2025-CA-001521

PATIENT
  Age: 52 Year
  Sex: Female

DRUGS (7)
  1. ARIMIDEX [Suspect]
     Active Substance: ANASTROZOLE
     Indication: Breast cancer
  2. CYCLOPHOSPHAMIDE [Suspect]
     Active Substance: CYCLOPHOSPHAMIDE
  3. DENOSUMAB [Suspect]
     Active Substance: DENOSUMAB
  4. DOXORUBICIN [Suspect]
     Active Substance: DOXORUBICIN
  5. PACLITAXEL [Suspect]
     Active Substance: PACLITAXEL
  6. TAMOXIFEN [Suspect]
     Active Substance: TAMOXIFEN
  7. TRASTUZUMAB [Suspect]
     Active Substance: TRASTUZUMAB

REACTIONS (2)
  - Hypophosphatasia [Unknown]
  - Foot fracture [Unknown]
